FAERS Safety Report 8776668 (Version 1)
Quarter: 2012Q4

REPORT INFORMATION
  Report Type: 
  Country: US (occurrence: US)
  Receive Date: 20120910
  Receipt Date: 20120910
  Transmission Date: 20130627
  Serious: Yes (Hospitalization, Other)
  Sender: FDA-Public Use
  Company Number: CHPA2012US019147

PATIENT
  Sex: Female

DRUGS (1)
  1. EXCEDRIN EXTRA STRENGTH [Suspect]
     Indication: HEADACHE
     Dosage: 1/2  to 1 DF, PRN
     Route: 048

REACTIONS (4)
  - Migraine [Recovered/Resolved]
  - Hypertension [Not Recovered/Not Resolved]
  - Underdose [Unknown]
  - Wrong technique in drug usage process [Unknown]
